FAERS Safety Report 11255907 (Version 1)
Quarter: 2015Q3

REPORT INFORMATION
  Report Type: Spontaneous
  Country: US (occurrence: US)
  Receive Date: 20150709
  Receipt Date: 20150709
  Transmission Date: 20151125
  Serious: No
  Sender: FDA-Public Use
  Company Number: US-PURDUE-USA-2015-0120506

PATIENT
  Sex: Female

DRUGS (2)
  1. BUTRANS [Suspect]
     Active Substance: BUPRENORPHINE
     Indication: INTERVERTEBRAL DISC PROTRUSION
     Dosage: 10 MCG/HR, WEEKLY
     Route: 062
     Dates: start: 201408
  2. BUTRANS [Suspect]
     Active Substance: BUPRENORPHINE
     Indication: SCIATICA

REACTIONS (7)
  - Application site reaction [Unknown]
  - Application site pain [Unknown]
  - Application site erythema [Unknown]
  - Device leakage [Unknown]
  - Application site pruritus [Unknown]
  - Product deposit [Unknown]
  - Hyperhidrosis [Unknown]
